FAERS Safety Report 15979747 (Version 2)
Quarter: 2019Q1

REPORT INFORMATION
  Report Type: Other
  Country: CA (occurrence: CA)
  Receive Date: 20190219
  Receipt Date: 20190312
  Transmission Date: 20190418
  Serious: Yes (Hospitalization, Other)
  Sender: FDA-Public Use
  Company Number: CA-INTERCEPT-PM2019000219

PATIENT

DRUGS (7)
  1. SENNOSIDE [Concomitant]
     Active Substance: SENNOSIDES
     Dosage: UNK MG, PRN
     Route: 065
  2. URSODIOL. [Concomitant]
     Active Substance: URSODIOL
     Dosage: 250 MG, BID
     Route: 065
  3. PANTOPRAZOLE [Concomitant]
     Active Substance: PANTOPRAZOLE
     Dosage: 40 MG, QD
     Route: 065
  4. GRAVOL [Concomitant]
     Active Substance: DIMENHYDRINATE
     Dosage: 25-50 MG, BID PRN
     Route: 065
  5. OCALIVA [Suspect]
     Active Substance: OBETICHOLIC ACID
     Indication: PRIMARY BILIARY CHOLANGITIS
     Dosage: 5 MG, QOD
     Route: 048
     Dates: start: 20180530
  6. BACLOFEN. [Concomitant]
     Active Substance: BACLOFEN
     Dosage: 5 MG, PRN
     Route: 065
  7. HYDROMORPH CONTIN [Concomitant]
     Active Substance: HYDROMORPHONE
     Dosage: 9 MG, QD
     Route: 065

REACTIONS (19)
  - Acute kidney injury [Recovering/Resolving]
  - Pulmonary alveolar haemorrhage [Unknown]
  - Arthritis [Unknown]
  - Autoimmune hepatitis [Unknown]
  - Pneumonia [Recovering/Resolving]
  - Hypoglycaemia [Unknown]
  - Duodenal ulcer haemorrhage [Unknown]
  - Hepatic failure [Unknown]
  - Anaemia [Unknown]
  - Altered state of consciousness [Unknown]
  - Vasculitis [Unknown]
  - Transaminases increased [Unknown]
  - Limb mass [Unknown]
  - Hepatic encephalopathy [Unknown]
  - Cellulitis [Recovering/Resolving]
  - Ascites [Unknown]
  - Pain in extremity [Unknown]
  - Hypotension [Unknown]
  - Hyperbilirubinaemia [Unknown]

NARRATIVE: CASE EVENT DATE: 20180131
